FAERS Safety Report 8900591 (Version 1)
Quarter: 2012Q4

REPORT INFORMATION
  Report Type: 
  Country: CA (occurrence: CA)
  Receive Date: 20121109
  Receipt Date: 20121109
  Transmission Date: 20130627
  Serious: Yes (Hospitalization, Other)
  Sender: FDA-Public Use
  Company Number: PHHO2005CA09457

PATIENT
  Sex: Female

DRUGS (11)
  1. SANDOSTATIN LAR [Suspect]
     Indication: CARCINOID TUMOUR
     Dosage: 30 mg, every 3 weeks
     Dates: start: 20030924
  2. SANDOSTATIN [Suspect]
     Indication: CARCINOID TUMOUR
     Route: 058
  3. CHLORPROMAZINE [Concomitant]
  4. DURAGESIC [Concomitant]
  5. STEMETIL [Concomitant]
  6. VIOXX [Concomitant]
  7. DILANTIN [Concomitant]
  8. PAROXETINE [Concomitant]
  9. PROCHLORPERAZINE [Concomitant]
  10. NOVOTRIPTYN [Concomitant]
  11. DEXAMETHASONE [Concomitant]

REACTIONS (42)
  - Nausea [Unknown]
  - Vomiting [Unknown]
  - Blood glucose increased [Unknown]
  - Abdominal pain [Unknown]
  - Vasculitis [Unknown]
  - Headache [Unknown]
  - Blood pressure increased [Unknown]
  - Convulsion [Unknown]
  - Amnesia [Unknown]
  - Phlebitis [Recovering/Resolving]
  - Biliary colic [Recovering/Resolving]
  - Weight increased [Unknown]
  - Asthenia [Unknown]
  - Vaginal haemorrhage [Unknown]
  - Somnolence [Unknown]
  - Injection site pain [Unknown]
  - Injection site induration [Unknown]
  - Flushing [Unknown]
  - Tremor [Unknown]
  - Anxiety [Unknown]
  - Insomnia [Unknown]
  - Pallor [Unknown]
  - Chills [Unknown]
  - Decreased appetite [Unknown]
  - Weight decreased [Unknown]
  - Pain [Recovering/Resolving]
  - Injection site reaction [Unknown]
  - Hyperhidrosis [Unknown]
  - Irritability [Unknown]
  - Nasopharyngitis [Unknown]
  - Mood altered [Unknown]
  - Nasal congestion [Unknown]
  - Depression [Unknown]
  - Liver disorder [Unknown]
  - Hypotension [Unknown]
  - Fatigue [Unknown]
  - Dizziness [Unknown]
  - Hyperglycaemia [Unknown]
  - Hypersensitivity [Unknown]
  - Diarrhoea [Unknown]
  - Hot flush [Unknown]
  - Mood swings [Unknown]
